FAERS Safety Report 8237780 (Version 3)
Quarter: 2012Q4

REPORT INFORMATION
  Report Type: Report from Study
  Country: US (occurrence: US)
  Receive Date: 20111109
  Receipt Date: 20121121
  Transmission Date: 20130627
  Serious: Yes (Hospitalization)
  Sender: FDA-Public Use
  Company Number: US-ABBOTT-11P-163-0871724-00

PATIENT
  Age: 49 None
  Sex: Female
  Weight: 60.33 kg

DRUGS (6)
  1. HUMIRA 40 MG/0.8 ML PEN [Suspect]
     Indication: PSORIASIS
     Route: 058
     Dates: start: 200806, end: 20110807
  2. GABAPENTIN [Concomitant]
     Indication: PRODUCT USED FOR UNKNOWN INDICATION
  3. LORCET-HD [Concomitant]
     Indication: PRODUCT USED FOR UNKNOWN INDICATION
     Dosage: 5-500 mg per capsule 1 every 6 hours as needed
     Route: 048
  4. MELOXICAM [Concomitant]
     Indication: PRODUCT USED FOR UNKNOWN INDICATION
     Route: 048
  5. VERAPAMIL [Concomitant]
     Indication: PRODUCT USED FOR UNKNOWN INDICATION
     Dosage: 1 tablet every 12 hours for 360 days
     Route: 048
  6. BACLOFEN [Concomitant]
     Indication: PRODUCT USED FOR UNKNOWN INDICATION
     Dosage: 1 tablet 2 x dialy for 360 days
     Route: 048

REACTIONS (20)
  - Hypoaesthesia [Recovering/Resolving]
  - Hypoaesthesia [Recovering/Resolving]
  - General physical health deterioration [Recovering/Resolving]
  - Aphasia [Recovering/Resolving]
  - Wheelchair user [Recovering/Resolving]
  - Walking aid user [Recovering/Resolving]
  - Diplopia [Unknown]
  - Myasthenia gravis [Unknown]
  - Guillain-Barre syndrome [Recovering/Resolving]
  - Guillain-Barre syndrome [Recovered/Resolved]
  - Pain in extremity [Recovering/Resolving]
  - Back pain [Recovering/Resolving]
  - Pain in extremity [Recovering/Resolving]
  - Areflexia [Unknown]
  - Psoriasis [Unknown]
  - Rash [Unknown]
  - Staphylococcal infection [Unknown]
  - Migraine [Unknown]
  - Miller Fisher syndrome [Unknown]
  - Eyelid function disorder [Not Recovered/Not Resolved]
